FAERS Safety Report 6083206-8 (Version None)
Quarter: 2009Q1

REPORT INFORMATION
  Report Type: 
  Country: None (occurrence: None)
  Receive Date: 20090219
  Receipt Date: 20090213
  Transmission Date: 20090719
  Serious: Yes (Other)
  Sender: FDA-Public Use
  Company Number: IT-JNJFOC-20080702572

PATIENT
  Sex: Male

DRUGS (3)
  1. RISPERDAL [Suspect]
     Indication: MAJOR DEPRESSION
     Route: 048
  2. ELOPRAM [Concomitant]
     Route: 048
  3. TAVOR [Concomitant]
     Route: 048

REACTIONS (1)
  - CEREBRAL ISCHAEMIA [None]
